FAERS Safety Report 5594685-4 (Version None)
Quarter: 2008Q1

REPORT INFORMATION
  Report Type: 
  Country: None (occurrence: None)
  Receive Date: 20080117
  Receipt Date: 20080107
  Transmission Date: 20080703
  Serious: Yes (Other)
  Sender: FDA-Public Use
  Company Number: US-AMGEN-US255629

PATIENT
  Sex: Male
  Weight: 124 kg

DRUGS (16)
  1. SENSIPAR [Suspect]
     Indication: HYPERPARATHYROIDISM SECONDARY
     Route: 048
     Dates: start: 20070307
  2. DOMPERIDONE [Suspect]
     Route: 065
  3. COUMADIN [Concomitant]
     Route: 065
  4. ZOCOR [Concomitant]
     Route: 065
     Dates: start: 20060630
  5. ATENOLOL [Concomitant]
     Route: 065
     Dates: start: 20060109
  6. CELEXA [Concomitant]
     Route: 065
     Dates: start: 20071102
  7. HUMULIN N [Concomitant]
     Route: 065
     Dates: start: 20060508
  8. HUMALOG [Concomitant]
     Route: 065
     Dates: start: 20060508
  9. FIBERCON [Concomitant]
     Route: 065
     Dates: start: 20040226
  10. RENAGEL [Concomitant]
     Route: 065
     Dates: start: 20050726
  11. MICARDIS [Concomitant]
     Route: 065
     Dates: start: 20010806
  12. HECTORAL [Concomitant]
     Route: 065
     Dates: start: 20070827
  13. FERRLECIT TABLET [Concomitant]
     Route: 065
     Dates: start: 20040910
  14. EPOGEN [Concomitant]
     Route: 065
     Dates: start: 20040805
  15. COLCHICINE [Concomitant]
     Route: 065
  16. DIATX [Concomitant]
     Route: 065

REACTIONS (4)
  - BREAST DISCHARGE [None]
  - BREAST MASS [None]
  - BREAST TENDERNESS [None]
  - GYNAECOMASTIA [None]
